FAERS Safety Report 6662086-3 (Version None)
Quarter: 2010Q1

REPORT INFORMATION
  Report Type: 
  Country: None (occurrence: None)
  Receive Date: 20100331
  Receipt Date: 20100319
  Transmission Date: 20100710
  Serious: Yes (Death, Other)
  Sender: FDA-Public Use
  Company Number: US-PFIZER INC-2009296494

PATIENT
  Sex: Female

DRUGS (1)
  1. CALAN [Suspect]
     Indication: HYPERTENSION
     Dosage: 180 MG, 1X/DAY
     Route: 048

REACTIONS (2)
  - CONVULSION [None]
  - DEATH [None]
